FAERS Safety Report 7771047-2 (Version None)
Quarter: 2011Q3

REPORT INFORMATION
  Report Type: 
  Country: None (occurrence: None)
  Receive Date: 20110922
  Receipt Date: 20110406
  Transmission Date: 20111222
  Serious: No
  Sender: FDA-Public Use
  Company Number: US-ASTRAZENECA-2011SE19458

PATIENT
  Sex: Male
  Weight: 90.7 kg

DRUGS (1)
  1. SEROQUEL XR [Suspect]
     Route: 048

REACTIONS (3)
  - GAIT DISTURBANCE [None]
  - FEELING DRUNK [None]
  - WRONG DRUG ADMINISTERED [None]
